FAERS Safety Report 17650178 (Version 2)
Quarter: 2020Q2

REPORT INFORMATION
  Report Type: Spontaneous
  Country: US (occurrence: US)
  Receive Date: 20200409
  Receipt Date: 20200505
  Transmission Date: 20200713
  Serious: No
  Sender: FDA-Public Use
  Company Number: US-SHIRE-US202012852

PATIENT
  Sex: Female
  Weight: 63.49 kg

DRUGS (1)
  1. VYVANSE [Suspect]
     Active Substance: LISDEXAMFETAMINE DIMESYLATE
     Indication: ATTENTION DEFICIT HYPERACTIVITY DISORDER
     Dosage: 50 MILLIGRAM, 1X/DAY:QD
     Route: 065

REACTIONS (3)
  - Drug ineffective [Unknown]
  - Somnolence [Unknown]
  - Product physical issue [Unknown]
